FAERS Safety Report 5100519-4 (Version None)
Quarter: 2006Q3

REPORT INFORMATION
  Report Type: 
  Country: None (occurrence: None)
  Receive Date: 20060907
  Receipt Date: 20060907
  Transmission Date: 20061208
  Serious: Yes (Hospitalization)
  Sender: FDA-Public Use
  Company Number: None

PATIENT
  Age: 67 Year
  Sex: Female
  Weight: 58.6 kg

DRUGS (1)
  1. PLAVIX [Suspect]
     Indication: STENT PLACEMENT
     Dosage: 75 MG ONCE DAILY PO
     Route: 048
     Dates: start: 20060825, end: 20060829

REACTIONS (4)
  - ANGIONEUROTIC OEDEMA [None]
  - POST PROCEDURAL COMPLICATION [None]
  - PRURITUS [None]
  - RASH GENERALISED [None]
